FAERS Safety Report 14431901 (Version 1)
Quarter: 2018Q1

REPORT INFORMATION
  Report Type: Spontaneous
  Country: GB (occurrence: GB)
  Receive Date: 20180124
  Receipt Date: 20180124
  Transmission Date: 20180509
  Serious: Yes (Disabling, Other)
  Sender: FDA-Public Use
  Company Number: GB-PFIZER INC-2018027665

PATIENT
  Age: 53 Year
  Sex: Female
  Weight: 58.6 kg

DRUGS (6)
  1. CO-DYDRAMOL [Concomitant]
     Active Substance: ACETAMINOPHEN\DIHYDROCODEINE
     Dosage: UNK
  2. SERTRALINE HYDROCHLORIDE. [Concomitant]
     Active Substance: SERTRALINE HYDROCHLORIDE
     Dosage: UNK
  3. BACLOFEN. [Concomitant]
     Active Substance: BACLOFEN
     Dosage: UNK
  4. PREGABALIN. [Suspect]
     Active Substance: PREGABALIN
     Dosage: 225 MG, DAILY  (75 MG MORNING AND 150 MG NIGHT)
     Route: 048
  5. PREGABALIN. [Suspect]
     Active Substance: PREGABALIN
     Indication: NEURALGIA
     Dosage: 150 MG, 1X/DAY (THEN BIG DROP AFTER 3 DAYS)
     Route: 048
     Dates: start: 2017
  6. PREGABALIN. [Suspect]
     Active Substance: PREGABALIN
     Dosage: 300 MG, DAILY  (MORNING AND NIGHT)
     Route: 048
     Dates: start: 201702

REACTIONS (17)
  - Intentional self-injury [Unknown]
  - Memory impairment [Not Recovered/Not Resolved]
  - Pain [Unknown]
  - Emotional distress [Unknown]
  - Anxiety [Unknown]
  - Gastrointestinal disorder [Unknown]
  - Hypertension [Not Recovered/Not Resolved]
  - Balance disorder [Unknown]
  - Depressed mood [Unknown]
  - Irritability [Unknown]
  - Dizziness [Not Recovered/Not Resolved]
  - Withdrawal syndrome [Unknown]
  - Muscle spasms [Unknown]
  - Palpitations [Not Recovered/Not Resolved]
  - Incontinence [Unknown]
  - Hyperhidrosis [Not Recovered/Not Resolved]
  - Suicidal ideation [Unknown]

NARRATIVE: CASE EVENT DATE: 201703
